FAERS Safety Report 21388546 (Version 2)
Quarter: 2022Q4

REPORT INFORMATION
  Report Type: Report from Study
  Country: GB (occurrence: GB)
  Receive Date: 20220928
  Receipt Date: 20221011
  Transmission Date: 20230112
  Serious: Yes (Disabling)
  Sender: FDA-Public Use
  Company Number: GB-NOVARTISPH-NVSC2022GB218750

PATIENT
  Age: 68 Year
  Sex: Female

DRUGS (1)
  1. ILARIS [Suspect]
     Active Substance: CANAKINUMAB
     Indication: Product used for unknown indication
     Dosage: UNK, EVERY EIGHT WEEK
     Route: 058
     Dates: start: 20190819

REACTIONS (3)
  - Osteoporosis [Unknown]
  - Patella fracture [Unknown]
  - Fall [Unknown]

NARRATIVE: CASE EVENT DATE: 20220804
